FAERS Safety Report 8932695 (Version 2)
Quarter: 2013Q1

REPORT INFORMATION
  Report Type: Report from Study
  Country: CN (occurrence: CN)
  Receive Date: 20121129
  Receipt Date: 20130128
  Transmission Date: 20140127
  Serious: Yes (Hospitalization)
  Sender: FDA-Public Use
  Company Number: CN-US-EMD SERONO, INC.-7169142

PATIENT
  Age: 36 Year
  Sex: Female
  Weight: 50 kg

DRUGS (1)
  1. LUVERIS [Suspect]
     Indication: IN VITRO FERTILISATION
     Route: 042
     Dates: start: 20110907, end: 20110909

REACTIONS (1)
  - Abortion spontaneous [Recovered/Resolved]
